FAERS Safety Report 25173968 (Version 2)
Quarter: 2025Q2

REPORT INFORMATION
  Report Type: Spontaneous
  Country: BR (occurrence: BR)
  Receive Date: 20250408
  Receipt Date: 20250512
  Transmission Date: 20250716
  Serious: Yes (Hospitalization, Other)
  Sender: ELI LILLY AND COMPANY
  Company Number: BR-ELI_LILLY_AND_COMPANY-BR202502022204

PATIENT
  Age: 39 Year
  Sex: Female

DRUGS (4)
  1. EMGALITY [Suspect]
     Active Substance: GALCANEZUMAB-GNLM
     Indication: Migraine
     Dosage: UNK UNK, MONTHLY (1/M)
     Route: 065
     Dates: start: 2021, end: 202503
  2. EMGALITY [Suspect]
     Active Substance: GALCANEZUMAB-GNLM
     Route: 065
  3. DESVENLAFAXINE [Concomitant]
     Active Substance: DESVENLAFAXINE
     Indication: Product used for unknown indication
     Route: 065
  4. FOLIC ACID [Concomitant]
     Active Substance: FOLIC ACID
     Indication: Supplementation therapy
     Route: 065

REACTIONS (6)
  - Abortion [Recovered/Resolved]
  - Retained products of conception [Unknown]
  - Intestinal obstruction [Unknown]
  - Ileus paralytic [Unknown]
  - Maternal exposure during pregnancy [Unknown]
  - Internal hernia [Unknown]

NARRATIVE: CASE EVENT DATE: 20250224
